FAERS Safety Report 8454687-7 (Version None)
Quarter: 2012Q2

REPORT INFORMATION
  Report Type: 
  Country: None (occurrence: None)
  Receive Date: 20120615
  Receipt Date: 20120615
  Transmission Date: 20120825
  Serious: Yes (Hospitalization, Other)
  Sender: FDA-Public Use
  Company Number: None

PATIENT
  Age: 54 Year
  Sex: Female
  Weight: 52.1637 kg

DRUGS (3)
  1. RECLAST [Suspect]
     Indication: OSTEOPOROSIS
     Dosage: 5MG/100ML VIAL ONCE/YEAR IV
     Route: 042
     Dates: start: 20110405
  2. MULTI-VITAMIN [Concomitant]
  3. LISINOPRIL [Concomitant]

REACTIONS (29)
  - ABDOMINAL PAIN LOWER [None]
  - HEADACHE [None]
  - VERTIGO [None]
  - PARAESTHESIA [None]
  - HOT FLUSH [None]
  - ACNE [None]
  - WEIGHT DECREASED [None]
  - NECK PAIN [None]
  - TOOTHACHE [None]
  - IMPAIRED WORK ABILITY [None]
  - INSOMNIA [None]
  - DISTURBANCE IN ATTENTION [None]
  - MUSCLE TWITCHING [None]
  - GLOSSODYNIA [None]
  - FLANK PAIN [None]
  - NAUSEA [None]
  - CHEST PAIN [None]
  - VISION BLURRED [None]
  - DECREASED APPETITE [None]
  - BURNING SENSATION [None]
  - FEELING JITTERY [None]
  - FATIGUE [None]
  - MALAISE [None]
  - ASTHENIA [None]
  - HEART RATE INCREASED [None]
  - ACTIVITIES OF DAILY LIVING IMPAIRED [None]
  - HYPERACUSIS [None]
  - SKIN WARM [None]
  - ALOPECIA [None]
